FAERS Safety Report 4974945-8 (Version None)
Quarter: 2006Q2

REPORT INFORMATION
  Report Type: 
  Country: None (occurrence: None)
  Receive Date: 20060414
  Receipt Date: 20060414
  Transmission Date: 20061013
  Serious: Yes (Other)
  Sender: FDA-Public Use
  Company Number: None

PATIENT
  Sex: Female
  Weight: 74 kg

DRUGS (3)
  1. CYTARABINE [Suspect]
     Indication: ACUTE MYELOID LEUKAEMIA
     Dosage: 1260 MG
     Dates: start: 20060119, end: 20060126
  2. DAUNORUBICIN HCL [Suspect]
     Dosage: 480 MG
     Dates: start: 20060119, end: 20060121
  3. ETOPOSIDE [Suspect]
     Dosage: 540 MG
     Dates: start: 20060119, end: 20060121

REACTIONS (10)
  - ACUTE RESPIRATORY DISTRESS SYNDROME [None]
  - BRONCHOSPASM [None]
  - CARDIAC FAILURE CONGESTIVE [None]
  - HYPOXIA [None]
  - LARYNGEAL OEDEMA [None]
  - LOBAR PNEUMONIA [None]
  - LUNG INFILTRATION [None]
  - PULMONARY ALVEOLAR HAEMORRHAGE [None]
  - PULMONARY OEDEMA [None]
  - RESPIRATORY FAILURE [None]
